FAERS Safety Report 4482246-X (Version None)
Quarter: 2004Q4

REPORT INFORMATION
  Report Type: 
  Country: None (occurrence: None)
  Receive Date: 20041020
  Receipt Date: 20041004
  Transmission Date: 20050328
  Serious: No
  Sender: FDA-Public Use
  Company Number: USA040875622

PATIENT
  Age: 74 Year
  Sex: Female
  Weight: 52 kg

DRUGS (3)
  1. EVISTA [Suspect]
  2. PREMARIN [Concomitant]
  3. PROVERA [Concomitant]

REACTIONS (2)
  - CONDITION AGGRAVATED [None]
  - HOT FLUSH [None]
